FAERS Safety Report 13522997 (Version 1)
Quarter: 2017Q2

REPORT INFORMATION
  Report Type: Spontaneous
  Country: US (occurrence: US)
  Receive Date: 20170508
  Receipt Date: 20170508
  Transmission Date: 20170830
  Serious: Yes (Hospitalization)
  Sender: FDA-Public Use
  Company Number: US-SA-2017SA080547

PATIENT
  Sex: Male

DRUGS (1)
  1. LEMTRADA [Suspect]
     Active Substance: ALEMTUZUMAB
     Route: 041
     Dates: start: 20160606, end: 20160610

REACTIONS (3)
  - Urinary retention [Unknown]
  - Urine odour abnormal [Unknown]
  - Lymphocyte count decreased [Unknown]
